FAERS Safety Report 7947943-X (Version None)
Quarter: 2011Q4

REPORT INFORMATION
  Report Type: 
  Country: None (occurrence: None)
  Receive Date: 20111130
  Receipt Date: 20111118
  Transmission Date: 20120403
  Serious: Yes (Other)
  Sender: FDA-Public Use
  Company Number: BR-JNJFOC-20111108559

PATIENT
  Age: 19 Year
  Sex: Male
  Weight: 38 kg

DRUGS (2)
  1. AZATHIOPRINE [Concomitant]
     Indication: CROHN'S DISEASE
     Route: 065
     Dates: start: 20050101
  2. REMICADE [Suspect]
     Indication: CROHN'S DISEASE
     Route: 042
     Dates: start: 20090521

REACTIONS (3)
  - GASTROINTESTINAL INFECTION [None]
  - DIARRHOEA [None]
  - DEHYDRATION [None]
